FAERS Safety Report 4654493-5 (Version None)
Quarter: 2005Q2

REPORT INFORMATION
  Report Type: 
  Country: None (occurrence: None)
  Receive Date: 20050504
  Receipt Date: 20050504
  Transmission Date: 20051028
  Serious: Yes (Life-Threatening, Hospitalization)
  Sender: FDA-Public Use
  Company Number: None

PATIENT
  Age: 53 Year
  Sex: Female
  Weight: 59.9 kg

DRUGS (10)
  1. PLAVIX [Suspect]
     Indication: ARTERIAL THERAPEUTIC PROCEDURE
     Dosage: 75 MG QD ORAL
     Route: 048
     Dates: start: 20050408, end: 20050429
  2. PLAVIX [Suspect]
     Indication: CORONARY ARTERY DISEASE
     Dosage: 75 MG QD ORAL
     Route: 048
     Dates: start: 20050408, end: 20050429
  3. ASPIRIN [Concomitant]
  4. NITROGLYCERIN [Concomitant]
  5. ALTACE [Concomitant]
  6. CRESTOR [Concomitant]
  7. LORTAB [Concomitant]
  8. TEGRETOL [Concomitant]
  9. CELEXA [Concomitant]
  10. PREMARIN [Concomitant]

REACTIONS (2)
  - ANAEMIA [None]
  - THROMBOTIC THROMBOCYTOPENIC PURPURA [None]
